FAERS Safety Report 8227257-3 (Version None)
Quarter: 2012Q1

REPORT INFORMATION
  Report Type: 
  Country: None (occurrence: None)
  Receive Date: 20120322
  Receipt Date: 20120313
  Transmission Date: 20120608
  Serious: Yes (Other)
  Sender: FDA-Public Use
  Company Number: PHEH2012US005141

PATIENT
  Sex: Male

DRUGS (5)
  1. DIURETICS [Concomitant]
  2. CLONIDINE [Concomitant]
     Dosage: 0.1 MG, UNK
     Route: 048
  3. EXJADE [Suspect]
     Indication: NEOPLASM
     Dosage: 500 MG, DAILY
     Route: 048
     Dates: start: 20100128, end: 20111220
  4. HYDROCHLOROTHIAZIDE [Concomitant]
     Indication: HYPERTENSION
     Route: 048
  5. BYSTOLIC [Concomitant]
     Dosage: 10 MG, UNK
     Route: 048

REACTIONS (8)
  - HYPOTENSION [None]
  - SYNCOPE [None]
  - FATIGUE [None]
  - HAEMOGLOBIN DECREASED [None]
  - ANAEMIA [None]
  - BLOOD CREATININE INCREASED [None]
  - HEPATIC CIRRHOSIS [None]
  - ASCITES [None]
